FAERS Safety Report 8918054 (Version 2)
Quarter: 2012Q4

REPORT INFORMATION
  Report Type: 
  Country: FR (occurrence: FR)
  Receive Date: 20121120
  Receipt Date: 20121121
  Transmission Date: 20130627
  Serious: Yes (Hospitalization)
  Sender: FDA-Public Use
  Company Number: FR-GILEAD-2012-0064777

PATIENT
  Age: 25 Year
  Sex: Male

DRUGS (2)
  1. TRUVADA [Suspect]
     Indication: CHRONIC HEPATITIS B
     Dosage: UNK
     Route: 048
     Dates: start: 2010
  2. TARKA 180/2 [Concomitant]
     Dosage: UNK
     Dates: end: 20120820

REACTIONS (2)
  - Leukopenia [Not Recovered/Not Resolved]
  - Neutropenia [Not Recovered/Not Resolved]
